FAERS Safety Report 5035572-X (Version None)
Quarter: 2006Q2

REPORT INFORMATION
  Report Type: 
  Country: None (occurrence: None)
  Receive Date: 20060526
  Receipt Date: 20060306
  Transmission Date: 20061013
  Serious: No
  Sender: FDA-Public Use
  Company Number: 220248

PATIENT
  Age: 62 Year
  Sex: Male

DRUGS (3)
  1. RAPTIVA [Suspect]
     Indication: PSORIASIS
     Dosage: 0.9 ML, 1/WEEK
     Dates: start: 20050901, end: 20051213
  2. LEXAPRO [Concomitant]
  3. OTC ANTACIDS (ANTACID NOS) [Concomitant]

REACTIONS (1)
  - ALOPECIA [None]
